FAERS Safety Report 8837984 (Version 1)
Quarter: 2012Q4

REPORT INFORMATION
  Report Type: 
  Country: AU (occurrence: AU)
  Receive Date: 20121012
  Receipt Date: 20121012
  Transmission Date: 20130627
  Serious: Yes (Hospitalization)
  Sender: FDA-Public Use
  Company Number: AU-CELGENEUS-008-20785-12101253

PATIENT
  Age: 69 Year
  Sex: Female
  Weight: 64 kg

DRUGS (9)
  1. THALIDOMIDE [Suspect]
     Indication: IGG MYELOMA
     Dosage: 100 Milligram
     Route: 048
     Dates: start: 20120221
  2. CYCLOPHOSPHAMIDE [Suspect]
     Indication: IGG MYELOMA
     Dosage: 500 Milligram
     Route: 048
     Dates: start: 20120221
  3. DEXAMETHASONE [Suspect]
     Indication: IGG MYELOMA
     Dosage: 40 Milligram
     Route: 048
     Dates: start: 20120221
  4. OLMESARTAN [Concomitant]
     Indication: DRUG USE FOR UNKNOWN INDICATION
     Route: 065
  5. ASPIRINE [Concomitant]
     Indication: DRUG USE FOR UNKNOWN INDICATION
     Route: 065
  6. OMEPRAZOLE [Concomitant]
     Indication: DRUG USE FOR UNKNOWN INDICATION
     Route: 065
  7. TEMAZEPAM [Concomitant]
     Indication: DRUG USE FOR UNKNOWN INDICATION
     Route: 065
  8. SERTRALINE [Concomitant]
     Indication: DRUG USE FOR UNKNOWN INDICATION
     Route: 065
  9. SODIUM CHLORIDE [Concomitant]
     Indication: HYPONATREMIA
     Dosage: 1.5L
     Route: 065

REACTIONS (5)
  - Inappropriate antidiuretic hormone secretion [Unknown]
  - Myopathy [Unknown]
  - Lethargy [Unknown]
  - Fatigue [Unknown]
  - Depression [Unknown]
